FAERS Safety Report 8768666 (Version 1)
Quarter: 2012Q4

REPORT INFORMATION
  Report Type: 
  Country: BR (occurrence: BR)
  Receive Date: 20120904
  Receipt Date: 20120904
  Transmission Date: 20130627
  Serious: Yes (Hospitalization, Other)
  Sender: FDA-Public Use
  Company Number: BR-ASTRAZENECA-2012SE64839

PATIENT
  Age: 57 Year
  Sex: Male

DRUGS (2)
  1. CRESTOR [Suspect]
     Route: 048
     Dates: end: 201205
  2. CRESTOR [Suspect]
     Route: 048
     Dates: start: 201205

REACTIONS (1)
  - Myocardial infarction [Recovered/Resolved]
